FAERS Safety Report 8238648-9 (Version None)
Quarter: 2012Q1

REPORT INFORMATION
  Report Type: 
  Country: None (occurrence: None)
  Receive Date: 20120309
  Receipt Date: 20100302
  Transmission Date: 20120608
  Serious: No
  Sender: FDA-Public Use
  Company Number: PHHY2010US06608

PATIENT
  Age: 39 Year
  Sex: Male
  Weight: 102 kg

DRUGS (7)
  1. ANTIDEPRESSANTS (NO INGREDIENTS/SUBSTANCES) [Concomitant]
  2. OXYCONTIN [Concomitant]
  3. ACETAMINOPHEN [Concomitant]
  4. VICODIN [Concomitant]
  5. NEURONTIN [Concomitant]
  6. EXTAVIA [Suspect]
     Indication: MULTIPLE SCLEROSIS
     Dosage: 0.0625 MG, QOD, SUBCUTANEOUS
     Route: 058
     Dates: start: 20100202
  7. ADDERALL 10 [Concomitant]

REACTIONS (4)
  - BODY TEMPERATURE INCREASED [None]
  - PAIN [None]
  - PYREXIA [None]
  - ABDOMINAL PAIN UPPER [None]
